FAERS Safety Report 16276236 (Version 1)
Quarter: 2019Q2

REPORT INFORMATION
  Report Type: Spontaneous
  Country: US (occurrence: US)
  Receive Date: 20190504
  Receipt Date: 20190504
  Transmission Date: 20190711
  Serious: Yes (Disabling)
  Sender: FDA-Public Use
  Company Number: None

PATIENT
  Age: 40 Year
  Sex: Male
  Weight: 99 kg

DRUGS (2)
  1. FLUORIDEX DAILY DEFENSE CLEAN MINT 5000PPM [Suspect]
     Active Substance: SODIUM FLUORIDE
     Indication: DENTAL DISORDER PROPHYLAXIS
     Dosage: 1/2^ ON TOOTHBRUSH;BRUSHING TEETH AT BEDTIME?
     Dates: start: 20170104, end: 20190225
  2. DAILY VITAMIN [Concomitant]
     Active Substance: VITAMINS

REACTIONS (8)
  - Muscle disorder [None]
  - Abdominal pain [None]
  - Abdominal distension [None]
  - Grip strength decreased [None]
  - Tendonitis [None]
  - Hypoaesthesia [None]
  - Defaecation urgency [None]
  - Gastric disorder [None]

NARRATIVE: CASE EVENT DATE: 20180727
